FAERS Safety Report 17542605 (Version 1)
Quarter: 2020Q1

REPORT INFORMATION
  Report Type: Spontaneous
  Country: GB (occurrence: GB)
  Receive Date: 20200315
  Receipt Date: 20200315
  Transmission Date: 20200409
  Serious: Yes (Other)
  Sender: FDA-Public Use
  Company Number: GB-HIKMA PHARMACEUTICALS USA INC.-GB-H14001-20-50779

PATIENT
  Age: 37 Year
  Sex: Male

DRUGS (4)
  1. IRINOTECAN [Suspect]
     Active Substance: IRINOTECAN
     Indication: ADENOMA BENIGN
     Dosage: ()
     Route: 065
  2. FOLINIC ACID [Suspect]
     Active Substance: LEUCOVORIN
     Indication: ADENOMA BENIGN
     Dosage: ()
     Route: 065
  3. PANITUMUMAB [Suspect]
     Active Substance: PANITUMUMAB
     Indication: ADENOMA BENIGN
     Dosage: ()
     Route: 065
  4. FLUOROURACIL. [Suspect]
     Active Substance: FLUOROURACIL
     Indication: ADENOMA BENIGN
     Dosage: ()
     Route: 065

REACTIONS (7)
  - Swelling face [Unknown]
  - Erythema [Unknown]
  - Dyspepsia [Unknown]
  - Stomatitis [Unknown]
  - Fatigue [Unknown]
  - Feeling hot [Unknown]
  - Taste disorder [Unknown]

NARRATIVE: CASE EVENT DATE: 20191129
